FAERS Safety Report 14120653 (Version 2)
Quarter: 2017Q4

REPORT INFORMATION
  Report Type: Spontaneous
  Country: US (occurrence: US)
  Receive Date: 20171024
  Receipt Date: 20171109
  Transmission Date: 20180321
  Serious: Yes (Other)
  Sender: FDA-Public Use
  Company Number: US-SUPERNUS PHARMACEUTICALS, INC.-2017SUP00278

PATIENT
  Age: 39 Year
  Sex: Female
  Weight: 89.8 kg

DRUGS (9)
  1. SILENOR [Concomitant]
     Active Substance: DOXEPIN HYDROCHLORIDE
     Dosage: 6 MG, 1X/DAY
  2. XOPENEX [Concomitant]
     Active Substance: LEVALBUTEROL HYDROCHLORIDE
     Dosage: UNK, AS NEEDED
  3. NORCO [Concomitant]
     Active Substance: ACETAMINOPHEN\HYDROCODONE BITARTRATE
     Dosage: UNK, AS NEEDED
  4. TROKENDI XR [Suspect]
     Active Substance: TOPIRAMATE
     Indication: EPILEPSY
     Dosage: 200 MG, 1X/DAY
     Route: 048
     Dates: start: 2014
  5. PROTONIX [Concomitant]
     Active Substance: PANTOPRAZOLE SODIUM
     Dosage: 40 MG, 1X/DAY
  6. CYMBALTA [Concomitant]
     Active Substance: DULOXETINE HYDROCHLORIDE
     Dosage: 60 MG, 1X/DAY
  7. CYMBALTA [Concomitant]
     Active Substance: DULOXETINE HYDROCHLORIDE
     Dosage: 30 MG, 1X/DAY
  8. EPIPEN [Concomitant]
     Active Substance: EPINEPHRINE
     Dosage: UNK, AS NEEDED
  9. KLONOPIN [Concomitant]
     Active Substance: CLONAZEPAM
     Dosage: 4 MG, 1X/DAY

REACTIONS (10)
  - Seizure [Not Recovered/Not Resolved]
  - Speech disorder [Recovered/Resolved]
  - Dysarthria [Not Recovered/Not Resolved]
  - Memory impairment [Not Recovered/Not Resolved]
  - Somnolence [Recovered/Resolved]
  - Contusion [Recovering/Resolving]
  - Emotional distress [Not Recovered/Not Resolved]
  - Hypertension [None]
  - Swelling face [Recovering/Resolving]
  - Drug effect decreased [None]

NARRATIVE: CASE EVENT DATE: 2015
